FAERS Safety Report 5362542-4 (Version None)
Quarter: 2007Q2

REPORT INFORMATION
  Report Type: 
  Country: None (occurrence: None)
  Receive Date: 20070619
  Receipt Date: 20070507
  Transmission Date: 20071010
  Serious: Yes (Hospitalization, Other)
  Sender: FDA-Public Use
  Company Number: JP-PFIZER INC-2007037790

PATIENT
  Sex: Female
  Weight: 42 kg

DRUGS (9)
  1. CABASER [Suspect]
     Indication: PARKINSON'S DISEASE
     Route: 048
     Dates: start: 20010110, end: 20070430
  2. INDERAL [Concomitant]
     Route: 048
     Dates: start: 20001101, end: 20051128
  3. AKINETON [Concomitant]
     Route: 048
     Dates: start: 20001101, end: 20051012
  4. NAUZELIN [Concomitant]
  5. RIVOTRIL [Concomitant]
     Route: 048
  6. PURSENNID [Concomitant]
     Route: 048
  7. LOXONIN [Concomitant]
  8. NEO DOPASTON [Concomitant]
     Route: 048
  9. BIOFERMIN [Concomitant]
     Route: 048
     Dates: start: 20050413, end: 20051128

REACTIONS (3)
  - AORTIC VALVE INCOMPETENCE [None]
  - BLOOD PRESSURE DECREASED [None]
  - MITRAL VALVE INCOMPETENCE [None]
